FAERS Safety Report 19711082 (Version 9)
Quarter: 2022Q1

REPORT INFORMATION
  Report Type: Report from Study
  Country: IT (occurrence: IT)
  Receive Date: 20210817
  Receipt Date: 20220114
  Transmission Date: 20220424
  Serious: Yes (Other)
  Sender: FDA-Public Use
  Company Number: IT-ROCHE-2760892

PATIENT
  Age: 59 Year
  Sex: Female
  Weight: 82 kg

DRUGS (42)
  1. EXEMESTANE [Suspect]
     Active Substance: EXEMESTANE
     Indication: HER2 positive breast cancer
     Dosage: 25 MILLIGRAM, QD (EXEMESTANE RECEIVED PRIOR TO THE EVENT ONSET: 22/APR/2020)
     Route: 048
     Dates: start: 20190819, end: 20200422
  2. EXEMESTANE [Suspect]
     Active Substance: EXEMESTANE
     Dosage: 25 MILLIGRAM, QD (25 MG, QD )
     Route: 065
     Dates: start: 20190819, end: 20200422
  3. EXEMESTANE [Suspect]
     Active Substance: EXEMESTANE
     Dosage: 25 MILLIGRAM, QD
     Dates: start: 20200422
  4. PACLITAXEL [Suspect]
     Active Substance: PACLITAXEL
     Indication: HER2 positive breast cancer
     Dosage: 130 MILLIGRAM (RECENT DOSE RECEIVED PRIOR TO THE EVENT ONSET: 17/JUN/2019)
     Route: 042
     Dates: start: 20190314, end: 20190610
  5. PACLITAXEL [Suspect]
     Active Substance: PACLITAXEL
     Dosage: 130 MILLIGRAM (130 MG (UNIT=NOT AVAILABLE)   )
     Route: 065
     Dates: start: 20190314, end: 20190610
  6. PACLITAXEL [Suspect]
     Active Substance: PACLITAXEL
     Dosage: 130 MILLIGRAM
     Route: 042
     Dates: start: 20190617
  7. TRASTUZUMAB [Suspect]
     Active Substance: TRASTUZUMAB
     Indication: HER2 positive breast cancer
     Dosage: UNK
     Route: 065
  8. TRASTUZUMAB [Suspect]
     Active Substance: TRASTUZUMAB
     Dosage: 2 MICROGRAM/KILOGRAM (DOSE RECEIVED PRIOR TO THE EVENT ONSET: 15/DEC/2020)
     Route: 042
     Dates: start: 20201215, end: 20210107
  9. TRASTUZUMAB [Suspect]
     Active Substance: TRASTUZUMAB
     Dosage: UNK (3.6 MICROGRAM/KILOGRAM, Q3WK  )
     Dates: start: 20201104
  10. TRASTUZUMAB [Suspect]
     Active Substance: TRASTUZUMAB
     Dosage: 3.6 MICROGRAM/KILOGRAM, Q3W
     Dates: start: 20201215
  11. TRASTUZUMAB [Suspect]
     Active Substance: TRASTUZUMAB
     Dosage: 3.6 MICROGRAM/KILOGRAM, Q3W
     Route: 042
     Dates: start: 20200506, end: 20201104
  12. IVABRADINE [Suspect]
     Active Substance: IVABRADINE
     Indication: Product used for unknown indication
     Dosage: UNK
     Route: 065
     Dates: start: 20151118
  13. IVABRADINE [Suspect]
     Active Substance: IVABRADINE
     Dosage: 25 MILLIGRAM, QD
     Route: 048
     Dates: start: 20190819, end: 20200422
  14. IVABRADINE [Suspect]
     Active Substance: IVABRADINE
     Dosage: 840 MILLIGRAM, Q3W
     Dates: start: 20190314, end: 20190314
  15. IVABRADINE [Suspect]
     Active Substance: IVABRADINE
     Dosage: 130 MILLIGRAM
     Dates: start: 20190314, end: 20190610
  16. IVABRADINE [Suspect]
     Active Substance: IVABRADINE
     Dosage: 3.6 MICROGRAM/KILOGRAM, Q3WK
     Dates: start: 20200506, end: 20201104
  17. IVABRADINE [Suspect]
     Active Substance: IVABRADINE
     Dosage: 25 MILLIGRAM, QD
     Dates: start: 20201215, end: 20210107
  18. ADO-TRASTUZUMAB EMTANSINE [Suspect]
     Active Substance: ADO-TRASTUZUMAB EMTANSINE
     Indication: HER2 positive breast cancer
     Dosage: 3.6 MICROGRAM/KILOGRAM Q3W(DOSE RECEIVED PRIOR TO THE EVENT ONSET: 04/NOV/2020)
     Route: 042
     Dates: end: 20201104
  19. ADO-TRASTUZUMAB EMTANSINE [Suspect]
     Active Substance: ADO-TRASTUZUMAB EMTANSINE
     Dosage: 3.6 MICROGRAM/KILOGRAM, Q3W
     Route: 042
     Dates: start: 20200506, end: 20201104
  20. ADO-TRASTUZUMAB EMTANSINE [Suspect]
     Active Substance: ADO-TRASTUZUMAB EMTANSINE
     Dosage: 3.6 MICROGRAM/KILOGRAM
     Route: 042
     Dates: end: 20201215
  21. PERTUZUMAB [Suspect]
     Active Substance: PERTUZUMAB
     Indication: HER2 positive breast cancer
     Dosage: 840 MILLIGRAM, Q3W (DOSE RECEIVED PRIOR TO THE EVENT ONSET: 08/APR/2019)
     Route: 042
     Dates: start: 20190314, end: 20190314
  22. PERTUZUMAB [Suspect]
     Active Substance: PERTUZUMAB
     Dosage: 840 MILLIGRAM, Q3W
     Dates: start: 20190408
  23. VINORELBINE [Suspect]
     Active Substance: VINORELBINE TARTRATE
     Indication: HER2 positive breast cancer
     Dosage: 25 MILLIGRAM/SQ. METER (25 MG/M2)(START DATE: 15-DEC-2020)
     Route: 042
  24. VINORELBINE TARTRATE [Suspect]
     Active Substance: VINORELBINE TARTRATE
     Indication: HER2 positive breast cancer
     Dosage: UNK, MILLIGRAM/SQ. METER (START DATE: 15-DEC-2020)
     Route: 065
  25. BISOPROLOL [Concomitant]
     Active Substance: BISOPROLOL
     Indication: Product used for unknown indication
     Dosage: UNK
     Route: 065
     Dates: start: 20151118
  26. BISOPROLOL [Concomitant]
     Active Substance: BISOPROLOL
     Dosage: UNK
     Dates: start: 20200709
  27. CHOLECALCIFEROL [Concomitant]
     Active Substance: CHOLECALCIFEROL
     Indication: Product used for unknown indication
     Dosage: UNK
     Route: 065
  28. QUETIAPINE [Concomitant]
     Active Substance: QUETIAPINE
     Indication: Product used for unknown indication
     Dosage: UNK
  29. URSODIOL [Concomitant]
     Active Substance: URSODIOL
     Indication: Product used for unknown indication
     Dosage: UNK
     Dates: start: 20200709
  30. QUETIAPINE FUMARATE [Concomitant]
     Active Substance: QUETIAPINE FUMARATE
     Indication: Product used for unknown indication
     Dosage: UNK
  31. IVABRADINE [Concomitant]
     Active Substance: IVABRADINE
     Dosage: UNK
     Route: 065
     Dates: start: 20151118
  32. DEXAMETHASONE [Concomitant]
     Active Substance: DEXAMETHASONE
     Indication: Product used for unknown indication
     Dosage: UNK
  33. CLARITHROMYCIN [Concomitant]
     Active Substance: CLARITHROMYCIN
     Indication: Product used for unknown indication
     Dosage: UNK
  34. CYMBALTA [Concomitant]
     Active Substance: DULOXETINE HYDROCHLORIDE
     Indication: Product used for unknown indication
     Dosage: UNK
  35. RANITIDINE [Concomitant]
     Active Substance: RANITIDINE
     Dosage: UNK
  36. HEPARIN SODIUM [Concomitant]
     Active Substance: HEPARIN SODIUM
     Indication: Product used for unknown indication
     Dosage: UNK
  37. AMOXICILLIN [Concomitant]
     Active Substance: AMOXICILLIN
     Indication: Product used for unknown indication
     Dosage: UNK
  38. ALIZAPRIDE [Concomitant]
     Active Substance: ALIZAPRIDE
     Indication: Product used for unknown indication
     Dosage: UNK
  39. CHLORPHENIRAMINE MALEATE [Concomitant]
     Active Substance: CHLORPHENIRAMINE MALEATE
     Indication: Product used for unknown indication
     Dosage: UNK
  40. HYDROCORTISONE [Concomitant]
     Active Substance: HYDROCORTISONE
     Indication: Product used for unknown indication
     Dosage: UNK
  41. ONDANSETRON [Concomitant]
     Active Substance: ONDANSETRON
     Indication: Product used for unknown indication
     Dosage: UNK
  42. RANITIDINE HYDROCHLORIDE [Concomitant]
     Active Substance: RANITIDINE HYDROCHLORIDE
     Indication: Product used for unknown indication
     Dosage: UNK

REACTIONS (3)
  - Neutropenia [Recovered/Resolved]
  - Underdose [Unknown]
  - Off label use [Unknown]

NARRATIVE: CASE EVENT DATE: 20190314
